FAERS Safety Report 8965795 (Version 1)
Quarter: 2012Q4

REPORT INFORMATION
  Report Type: 
  Country: CA (occurrence: CA)
  Receive Date: 20121217
  Receipt Date: 20121217
  Transmission Date: 20130627
  Serious: Yes (Other)
  Sender: FDA-Public Use
  Company Number: CA-SANOFI-AVENTIS-2012SA090310

PATIENT
  Age: 75 Year
  Sex: Male
  Weight: 81 kg

DRUGS (14)
  1. PLAVIX [Suspect]
     Indication: DRUG USE FOR UNKNOWN INDICATION
     Route: 065
     Dates: start: 20090806, end: 20091216
  2. ASPIRINE [Suspect]
     Indication: DRUG USE FOR UNKNOWN INDICATION
     Route: 065
     Dates: start: 20090205
  3. BLINDED THERAPY [Concomitant]
     Route: 048
     Dates: start: 20091001, end: 20091216
  4. PANTOPRAZOLE [Concomitant]
     Dates: start: 20090810
  5. AVALIDE [Concomitant]
     Dates: start: 20090905, end: 20101012
  6. AVALIDE [Concomitant]
     Dates: start: 20101013
  7. METOPROLOL [Concomitant]
     Dates: start: 20090808, end: 20110531
  8. METOPROLOL [Concomitant]
     Dates: start: 20110606
  9. CORONARY VASODILATORS [Concomitant]
     Dates: start: 20090807
  10. SYNTHROID [Concomitant]
     Dates: start: 2007
  11. LYRICA [Concomitant]
     Dates: start: 200903
  12. SALBUTAMOL [Concomitant]
     Dates: start: 2007
  13. ALPRAZOLAM [Concomitant]
     Dates: start: 2008
  14. CRESTOR /UNK/ [Concomitant]
     Dates: start: 20090802

REACTIONS (1)
  - Rectal adenocarcinoma [Recovering/Resolving]
